FAERS Safety Report 8289825-2 (Version None)
Quarter: 2012Q2

REPORT INFORMATION
  Report Type: 
  Country: None (occurrence: None)
  Receive Date: 20120417
  Receipt Date: 20120413
  Transmission Date: 20120825
  Serious: No
  Sender: FDA-Public Use
  Company Number: US-PFIZER INC-2012092897

PATIENT
  Sex: Female
  Weight: 76.644 kg

DRUGS (10)
  1. KLONOPIN [Concomitant]
     Dosage: UNK
  2. ATENOLOL [Concomitant]
     Indication: TRANSIENT ISCHAEMIC ATTACK
  3. EFFEXOR XR [Suspect]
     Indication: ANXIETY
     Dosage: 225 MG/DAY
     Route: 048
     Dates: start: 20111201
  4. SIMVASTATIN [Concomitant]
     Indication: BLOOD CHOLESTEROL ABNORMAL
     Dosage: UNK
  5. ATENOLOL [Concomitant]
     Indication: BLOOD CHOLESTEROL ABNORMAL
     Dosage: UNK
  6. EFFEXOR XR [Suspect]
     Indication: DEPRESSION
     Dosage: 150 MG, 1X/DAY
     Route: 048
  7. SIMVASTATIN [Concomitant]
     Indication: TRANSIENT ISCHAEMIC ATTACK
  8. PLAVIX [Concomitant]
     Indication: TRANSIENT ISCHAEMIC ATTACK
  9. PLAVIX [Concomitant]
     Indication: BLOOD CHOLESTEROL ABNORMAL
     Dosage: UNK
  10. EFFEXOR XR [Suspect]
     Indication: AGORAPHOBIA

REACTIONS (2)
  - CYST [None]
  - DEPRESSION [None]
